FAERS Safety Report 21029023 (Version 1)
Quarter: 2022Q2

REPORT INFORMATION
  Report Type: Spontaneous
  Country: DE (occurrence: DE)
  Receive Date: 20220630
  Receipt Date: 20220630
  Transmission Date: 20220721
  Serious: Yes (Life-Threatening, Other)
  Sender: FDA-Public Use
  Company Number: DE-NOVPHSZ-PHHY2019DE163114

PATIENT
  Sex: Male
  Weight: 95 kg

DRUGS (23)
  1. VALSARTAN [Suspect]
     Active Substance: VALSARTAN
     Indication: Hypertension
     Dosage: 160 MILLIGRAM, QD,160 MG, QD
     Route: 065
     Dates: start: 201606
  2. VALSARTAN [Suspect]
     Active Substance: VALSARTAN
     Indication: Hypertension
     Dosage: 160 MG OR 80 MG DAILY DOSE, QD (MORNING) (AMBIGUOUS)
     Route: 065
     Dates: start: 20170130, end: 20180721
  3. ESOMEPRAZOLE MAGNESIUM [Suspect]
     Active Substance: ESOMEPRAZOLE MAGNESIUM
     Indication: Product used for unknown indication
     Dosage: 1 DOSAGE FORM, QD,1 DF, QD
     Route: 065
  4. JARDIANCE [Suspect]
     Active Substance: EMPAGLIFLOZIN
     Indication: Product used for unknown indication
     Dosage: 0.5 DOSAGE FORM, QD,0.5 DF, QD
     Route: 065
  5. TELMISARTAN [Suspect]
     Active Substance: TELMISARTAN
     Indication: Product used for unknown indication
     Dosage: 1 DOSAGE FORM, QD
     Route: 065
  6. MCP [Concomitant]
     Active Substance: METOCLOPRAMIDE HYDROCHLORIDE
     Indication: Product used for unknown indication
     Dosage: 1 DOSAGE FORM, AM(1 A PHARMA ), DAILY (MORNING)
     Route: 065
  7. VALSARTAN [Concomitant]
     Active Substance: VALSARTAN
     Indication: Product used for unknown indication
     Dosage: 320 MILLIGRAM, QD,160 MG, BID (MORNING AND EVENING)
     Route: 065
  8. PROTAPHANE [Concomitant]
     Active Substance: INSULIN HUMAN
     Indication: Product used for unknown indication
     Dosage: 14 IU, QD (0-0-0-14), 100 IU/ML
     Route: 065
  9. METFORMIN HYDROCHLORIDE [Concomitant]
     Active Substance: METFORMIN HYDROCHLORIDE
     Indication: Product used for unknown indication
     Dosage: 2 DOSAGE FORM, QD,1 DOSAGE FORM, BID (MORNING AND EVENING)
     Route: 065
  10. ETORICOXIB [Concomitant]
     Active Substance: ETORICOXIB
     Indication: Product used for unknown indication
     Dosage: 1 DOSAGE FORM (1X 90 MG) IN THE EVENING
     Route: 065
  11. HYDROCHLOROTHIAZIDE\VALSARTAN [Concomitant]
     Active Substance: HYDROCHLOROTHIAZIDE\VALSARTAN
     Indication: Hypertension
     Dosage: 80 MILLIGRAM, 80 MG/ 12.5MG
     Route: 065
     Dates: start: 2018
  12. AMLODIPINE BESYLATE [Concomitant]
     Active Substance: AMLODIPINE BESYLATE
     Indication: Product used for unknown indication
     Dosage: 0.5 DOSAGE FORM, AM(IN THE MORNING)
     Route: 065
  13. VICTOZA [Concomitant]
     Active Substance: LIRAGLUTIDE
     Indication: Product used for unknown indication
     Dosage: 1.2 ML, QD (1.2-0-0), READY PEN
     Route: 065
  14. BEZAFIBRAT AL [Concomitant]
     Indication: Product used for unknown indication
     Dosage: 1 DOSAGE FORM, PM,QD (1X400) (IN THE EVENING)
     Route: 065
  15. INSULIN NOS [Concomitant]
     Active Substance: INSULIN NOS
     Indication: Type 2 diabetes mellitus
     Dosage: UNK
     Route: 065
  16. TORSEMIDE [Concomitant]
     Active Substance: TORSEMIDE
     Indication: Product used for unknown indication
     Dosage: 1 DOSAGE FORM, AM,1 DOSAGE FORM, QD, DAILY (MORNING)
     Route: 065
  17. AXIRON [Concomitant]
     Active Substance: TESTOSTERONE
     Indication: Product used for unknown indication
     Dosage: UNK(1X2)
     Route: 065
  18. SYMBICORT [Concomitant]
     Active Substance: BUDESONIDE\FORMOTEROL FUMARATE DIHYDRATE
     Indication: Product used for unknown indication
     Dosage: INHALER,3 DOSAGE FORM, QD,1 DOSAGE FORM, TID
     Route: 065
  19. HYDROCHLOROTHIAZIDE\VALSARTAN [Concomitant]
     Active Substance: HYDROCHLOROTHIAZIDE\VALSARTAN
     Indication: Hypertension
     Dosage: 160 MILLIGRAM,160 MG
     Route: 065
     Dates: start: 20171103
  20. ALBUTEROL SULFATE [Concomitant]
     Active Substance: ALBUTEROL SULFATE
     Indication: Product used for unknown indication
     Dosage: 100 MICROGRAM,100 UG/400, PRN, AS NEEDED,INHALER
     Route: 065
  21. IBUPROFEN [Concomitant]
     Active Substance: IBUPROFEN
     Indication: Product used for unknown indication
     Dosage: 1 DOSAGE FORM, PRN, AS NEEDED
     Route: 065
  22. LYRICA [Concomitant]
     Active Substance: PREGABALIN
     Indication: Product used for unknown indication
     Dosage: 2 DOSAGE FORM, QD,1 DOSAGE FORM, BID ((MORNING AND EVENING))
     Route: 065
  23. METAMIZOLE SODIUM [Concomitant]
     Active Substance: METAMIZOLE SODIUM
     Indication: Product used for unknown indication
     Dosage: 2 DOSAGE FORM, QD,1 DOSAGE FORM, BID, DAILY (MORNING AND EVENING)
     Route: 065

REACTIONS (48)
  - Feeling abnormal [Unknown]
  - Cardiac failure [Unknown]
  - Electrocardiogram ST segment depression [Unknown]
  - Blood pressure increased [Unknown]
  - Mitral valve incompetence [Unknown]
  - Polyarthritis [Unknown]
  - Polyneuropathy [Unknown]
  - Osteonecrosis [Unknown]
  - Rheumatoid arthritis [Unknown]
  - Osteoarthritis [Unknown]
  - Somnolence [Unknown]
  - Body fat disorder [Unknown]
  - Left ventricular hypertrophy [Unknown]
  - Supraventricular extrasystoles [Unknown]
  - Bundle branch block right [Unknown]
  - Emotional distress [Unknown]
  - Synovial disorder [Unknown]
  - Chest pain [Unknown]
  - Atrioventricular block first degree [Unknown]
  - Mental disorder [Unknown]
  - Fear [Unknown]
  - Synovial cyst [Unknown]
  - Gastrointestinal disorder [Unknown]
  - Ill-defined disorder [Unknown]
  - Incontinence [Unknown]
  - Meniscus injury [Unknown]
  - Anxiety disorder [Unknown]
  - Nocturia [Unknown]
  - General physical health deterioration [Unknown]
  - Benign prostatic hyperplasia [Unknown]
  - Cardiac discomfort [Unknown]
  - Depression [Recovered/Resolved]
  - C-reactive protein increased [Unknown]
  - Pain in extremity [Unknown]
  - Hyperventilation [Unknown]
  - Joint effusion [Unknown]
  - Palpitations [Unknown]
  - Arthralgia [Recovered/Resolved]
  - Dry mouth [Unknown]
  - Lymphoedema [Unknown]
  - Product contamination [Unknown]
  - Aortic valve sclerosis [Unknown]
  - Spermatocele [Unknown]
  - Asthenia [Unknown]
  - Cardiovascular disorder [Recovered/Resolved]
  - Headache [Recovered/Resolved]
  - Diarrhoea [Recovered/Resolved]
  - Fatigue [Recovered/Resolved]

NARRATIVE: CASE EVENT DATE: 20170130
